FAERS Safety Report 4672521-8 (Version None)
Quarter: 2005Q2

REPORT INFORMATION
  Report Type: 
  Country: None (occurrence: None)
  Receive Date: 20050524
  Receipt Date: 20050512
  Transmission Date: 20051028
  Serious: Yes (Death)
  Sender: FDA-Public Use
  Company Number: GB-BRISTOL-MYERS SQUIBB COMPANY-12965778

PATIENT
  Sex: Male

DRUGS (11)
  1. WARFARIN SODIUM [Suspect]
  2. SPIRIVA [Suspect]
     Route: 055
  3. ALLOPURINOL [Suspect]
  4. DIGOXIN [Suspect]
  5. FUROSEMIDE [Suspect]
     Dosage: 80MG A.M. DAILY
  6. PANTOPRAZOLE [Suspect]
  7. PERINDOPRIL [Suspect]
  8. SIMVASTATIN [Suspect]
     Dosage: 40MG ONCE NIGHTLY
  9. BECLOMETHASONE DIPROPIONATE [Suspect]
  10. VENTOLIN [Suspect]
     Route: 055
  11. PARACETAMOL [Suspect]

REACTIONS (1)
  - AORTIC DISSECTION [None]
